FAERS Safety Report 12651354 (Version 7)
Quarter: 2018Q4

REPORT INFORMATION
  Report Type: Spontaneous
  Country: IE (occurrence: IE)
  Receive Date: 20160815
  Receipt Date: 20181101
  Transmission Date: 20190204
  Serious: Yes (Other)
  Sender: FDA-Public Use
  Company Number: IE-009507513-1608IRL005006

PATIENT
  Sex: Female

DRUGS (1)
  1. IMPLANON [Suspect]
     Active Substance: ETONOGESTREL
     Dosage: 1 DF, UNK
     Route: 059
     Dates: start: 20120430

REACTIONS (7)
  - Incorrect product administration duration [Unknown]
  - Amenorrhoea [Unknown]
  - Complication associated with device [Recovered/Resolved]
  - Device embolisation [Not Recovered/Not Resolved]
  - Menstruation irregular [Recovering/Resolving]
  - Pneumothorax [Unknown]
  - Complication of device removal [Not Recovered/Not Resolved]

NARRATIVE: CASE EVENT DATE: 20150430
